FAERS Safety Report 15114934 (Version 1)
Quarter: 2018Q3

REPORT INFORMATION
  Report Type: Spontaneous
  Country: US (occurrence: US)
  Receive Date: 20180706
  Receipt Date: 20180706
  Transmission Date: 20181010
  Serious: Yes (Other)
  Sender: FDA-Public Use
  Company Number: US-SA-2018SA161844

PATIENT
  Age: 48 Year

DRUGS (5)
  1. HERCEPTIN [Concomitant]
     Active Substance: TRASTUZUMAB
     Route: 042
  2. CARBOPLATIN. [Concomitant]
     Active Substance: CARBOPLATIN
     Dosage: UNK UNK, UNK
     Route: 042
  3. TAXOTERE [Suspect]
     Active Substance: DOCETAXEL
     Dosage: 140 UNK
     Route: 042
  4. TAXOTERE [Suspect]
     Active Substance: DOCETAXEL
     Dosage: 120 MG, UNK
     Route: 042
     Dates: start: 20110210, end: 20110210
  5. TAXOTERE [Suspect]
     Active Substance: DOCETAXEL
     Dosage: 140 MG, UNK
     Route: 042
     Dates: start: 20101021, end: 20101021

REACTIONS (1)
  - Alopecia [Not Recovered/Not Resolved]
